FAERS Safety Report 5189779-1 (Version None)
Quarter: 2006Q4

REPORT INFORMATION
  Report Type: 
  Country: None (occurrence: None)
  Receive Date: 20061218
  Receipt Date: 20061205
  Transmission Date: 20070319
  Serious: Yes (Death)
  Sender: FDA-Public Use
  Company Number: 009389

PATIENT
  Age: 37 Year
  Sex: Male

DRUGS (7)
  1. CLARAVIS [Suspect]
     Indication: GLIOBLASTOMA
     Dosage: 120 MG, BID, ORAL
     Route: 048
     Dates: start: 20060519, end: 20060912
  2. DECADRON [Concomitant]
  3. NEXIUM [Concomitant]
  4. KEPPRA [Concomitant]
  5. TRILEPTAL [Concomitant]
  6. COUMADIN [Concomitant]
  7. INSULIN [Concomitant]

REACTIONS (2)
  - GLIOBLASTOMA [None]
  - MALIGNANT NEOPLASM PROGRESSION [None]
